FAERS Safety Report 4806561-2 (Version None)
Quarter: 2005Q4

REPORT INFORMATION
  Report Type: 
  Country: None (occurrence: None)
  Receive Date: 20051019
  Receipt Date: 20051006
  Transmission Date: 20060501
  Serious: Yes (Hospitalization)
  Sender: FDA-Public Use
  Company Number: 2005BI006711

PATIENT
  Age: 59 Year
  Sex: Female
  Weight: 72.5755 kg

DRUGS (2)
  1. AVONEX [Suspect]
     Indication: MULTIPLE SCLEROSIS
     Dosage: 30 UG; QW; IM
     Route: 030
     Dates: start: 20010319, end: 20030801
  2. AVONEX [Suspect]
     Indication: MULTIPLE SCLEROSIS
     Dosage: 30 UG; QW; IM
     Route: 030
     Dates: start: 20030801

REACTIONS (26)
  - ASTHENIA [None]
  - ASTHMA [None]
  - ATROPHY [None]
  - CARDIOGENIC SHOCK [None]
  - CONDITION AGGRAVATED [None]
  - HYPERREFLEXIA [None]
  - HYPERTONIA [None]
  - HYPOACUSIS [None]
  - HYPOAESTHESIA [None]
  - IMPAIRED GASTRIC EMPTYING [None]
  - INJECTION SITE HAEMORRHAGE [None]
  - LOSS OF CONSCIOUSNESS [None]
  - LUNG NEOPLASM [None]
  - LUNG NEOPLASM MALIGNANT [None]
  - MOVEMENT DISORDER [None]
  - MYALGIA [None]
  - NEUROGENIC SHOCK [None]
  - OEDEMA PERIPHERAL [None]
  - PNEUMONIA [None]
  - SENSORY DISTURBANCE [None]
  - SKIN INFECTION [None]
  - SKIN LACERATION [None]
  - SYNCOPE [None]
  - TANDEM GAIT TEST ABNORMAL [None]
  - TENDON INJURY [None]
  - TENDON RUPTURE [None]
